FAERS Safety Report 7339904-9 (Version None)
Quarter: 2011Q1

REPORT INFORMATION
  Report Type: 
  Country: None (occurrence: None)
  Receive Date: 20110309
  Receipt Date: 20110301
  Transmission Date: 20110831
  Serious: Yes (Other)
  Sender: FDA-Public Use
  Company Number: US-BAYER-2011-020162

PATIENT
  Age: 60 Year
  Sex: Male

DRUGS (1)
  1. AVELOX [Suspect]
     Dosage: DAILY DOSE 400 MG
     Route: 048

REACTIONS (1)
  - TENDON RUPTURE [None]
